FAERS Safety Report 10678518 (Version 1)
Quarter: 2014Q4

REPORT INFORMATION
  Report Type: Spontaneous
  Country: JP (occurrence: JP)
  Receive Date: 20141229
  Receipt Date: 20141229
  Transmission Date: 20150529
  Serious: Yes (Other)
  Sender: FDA-Public Use
  Company Number: JP-TEVA-531424ISR

PATIENT
  Age: 50 Year
  Sex: Female

DRUGS (2)
  1. MESALAZINE [Suspect]
     Active Substance: MESALAMINE
     Indication: COLITIS ULCERATIVE
     Dosage: 3.6 G/DAY
     Route: 048
  2. MESALAZINE [Suspect]
     Active Substance: MESALAMINE
     Indication: COLITIS ULCERATIVE
     Dosage: 2.4 G/DAY
     Route: 048

REACTIONS (3)
  - Pneumonitis [Recovering/Resolving]
  - Diarrhoea [Unknown]
  - Eosinophilia [Unknown]
